FAERS Safety Report 8392829 (Version 3)
Quarter: 2014Q1

REPORT INFORMATION
  Report Type: Spontaneous
  Country: US (occurrence: US)
  Receive Date: 20120207
  Receipt Date: 20140211
  Transmission Date: 20141002
  Serious: No
  Sender: FDA-Public Use
  Company Number: US-BIOGENIDEC-2012BI003318

PATIENT
  Age: 36 Year
  Sex: Female

DRUGS (1)
  1. TYSABRI [Suspect]
     Indication: MULTIPLE SCLEROSIS
     Route: 042
     Dates: start: 20070112

REACTIONS (3)
  - Benign familial pemphigus [Not Recovered/Not Resolved]
  - Fungal infection [Recovered/Resolved]
  - Uhthoff^s phenomenon [Recovered/Resolved]
